FAERS Safety Report 4309374-3 (Version None)
Quarter: 2004Q1

REPORT INFORMATION
  Report Type: 
  Country: None (occurrence: None)
  Receive Date: 20040302
  Receipt Date: 20040203
  Transmission Date: 20041129
  Serious: Yes (Other)
  Sender: FDA-Public Use
  Company Number: JP-ROCHE-358264

PATIENT
  Age: 15 Year
  Sex: Female
  Weight: 40 kg

DRUGS (4)
  1. TAMIFLU [Suspect]
     Route: 048
     Dates: start: 20040126, end: 20040130
  2. KETEK [Suspect]
     Indication: DRUG USE FOR UNKNOWN INDICATION
     Route: 048
     Dates: start: 20040126, end: 20040130
  3. MUCODYNE [Concomitant]
     Indication: DRUG USE FOR UNKNOWN INDICATION
     Route: 048
     Dates: start: 20040126, end: 20040130
  4. TAVEGYL [Concomitant]
     Route: 048
     Dates: start: 20040126, end: 20040130

REACTIONS (5)
  - BLOOD LACTATE DEHYDROGENASE INCREASED [None]
  - BODY TEMPERATURE INCREASED [None]
  - C-REACTIVE PROTEIN INCREASED [None]
  - TONGUE PARALYSIS [None]
  - WHITE BLOOD CELL COUNT DECREASED [None]
